FAERS Safety Report 5278936-1 (Version None)
Quarter: 2007Q1

REPORT INFORMATION
  Report Type: 
  Country: None (occurrence: None)
  Receive Date: 20061208
  Receipt Date: 20050516
  Transmission Date: 20070707
  Serious: No
  Sender: FDA-Public Use
  Company Number: 2005UW07539

PATIENT
  Age: 51 Year
  Sex: Female

DRUGS (6)
  1. CRESTOR [Suspect]
     Dosage: 10 MG QD PO
     Route: 048
     Dates: start: 20041112
  2. COREG [Concomitant]
  3. LOTREL [Concomitant]
  4. DIOVAN [Concomitant]
  5. LEVOXYL [Concomitant]
  6. K-DUR 10 [Concomitant]

REACTIONS (3)
  - FATIGUE [None]
  - JAUNDICE [None]
  - LIVER FUNCTION TEST ABNORMAL [None]
